FAERS Safety Report 9200353 (Version 4)
Quarter: 2014Q2

REPORT INFORMATION
  Report Type: Spontaneous
  Country: US (occurrence: US)
  Receive Date: 20130329
  Receipt Date: 20140505
  Transmission Date: 20141212
  Serious: Yes (Disabling)
  Sender: FDA-Public Use
  Company Number: US-009507513-0909USA02443

PATIENT
  Sex: Male
  Weight: 97.69 kg

DRUGS (1)
  1. PROPECIA [Suspect]
     Indication: ANDROGENETIC ALOPECIA
     Dosage: 1 MG, QD
     Route: 048
     Dates: start: 20070618, end: 20080301

REACTIONS (18)
  - Anxiety [Not Recovered/Not Resolved]
  - Emotional distress [Unknown]
  - Sexual dysfunction [Unknown]
  - Androgen deficiency [Not Recovered/Not Resolved]
  - Lethargy [Not Recovered/Not Resolved]
  - Muscle atrophy [Not Recovered/Not Resolved]
  - Penis disorder [Not Recovered/Not Resolved]
  - Disturbance in attention [Not Recovered/Not Resolved]
  - Insomnia [Not Recovered/Not Resolved]
  - Cough [Unknown]
  - Respiratory tract congestion [Unknown]
  - Hypogonadism [Unknown]
  - Fatigue [Unknown]
  - Sexually transmitted disease [Unknown]
  - Depression [Not Recovered/Not Resolved]
  - Erectile dysfunction [Recovering/Resolving]
  - Libido decreased [Recovering/Resolving]
  - Disturbance in attention [Not Recovered/Not Resolved]
